FAERS Safety Report 8464987-2 (Version None)
Quarter: 2012Q2

REPORT INFORMATION
  Report Type: 
  Country: None (occurrence: None)
  Receive Date: 20120626
  Receipt Date: 20120618
  Transmission Date: 20120825
  Serious: Yes (Hospitalization, Other)
  Sender: FDA-Public Use
  Company Number: JP-ASTELLAS-2012JP005179

PATIENT
  Age: 40 Year
  Sex: Male

DRUGS (4)
  1. ACYCLOVIR [Concomitant]
     Indication: ANTIVIRAL TREATMENT
     Dosage: 750 MG, UNKNOWN/D
     Route: 065
  2. PROGRAF [Suspect]
     Indication: IMMUNOSUPPRESSANT DRUG THERAPY
     Route: 041
  3. METHOTREXATE [Concomitant]
     Indication: PROPHYLAXIS AGAINST GRAFT VERSUS HOST DISEASE
     Dosage: UNK
     Route: 065
  4. PROGRAF [Suspect]
     Indication: PROPHYLAXIS AGAINST GRAFT VERSUS HOST DISEASE
     Dosage: UNK
     Route: 041
     Dates: start: 20100101

REACTIONS (5)
  - DRUG INEFFECTIVE [None]
  - HERPES ZOSTER [None]
  - ENCEPHALOMYELITIS [None]
  - CHRONIC GRAFT VERSUS HOST DISEASE [None]
  - ACUTE GRAFT VERSUS HOST DISEASE [None]
